FAERS Safety Report 14572461 (Version 3)
Quarter: 2020Q2

REPORT INFORMATION
  Report Type: Report from Study
  Country: US (occurrence: US)
  Receive Date: 20180226
  Receipt Date: 20200511
  Transmission Date: 20200713
  Serious: Yes (Hospitalization, Other)
  Sender: FDA-Public Use
  Company Number: US-SA-2018SA049619

PATIENT
  Age: 47 Year
  Sex: Female

DRUGS (2)
  1. ALEMTUZUMAB [Suspect]
     Active Substance: ALEMTUZUMAB
     Indication: MULTIPLE SCLEROSIS
     Dosage: 12 MG,QD
     Route: 041
     Dates: start: 20160711, end: 20160715
  2. ALEMTUZUMAB [Suspect]
     Active Substance: ALEMTUZUMAB
     Dosage: 12 MG,QD
     Route: 041
     Dates: start: 20170911, end: 20170913

REACTIONS (16)
  - Pyrexia [Recovered/Resolved]
  - Sepsis [Recovered/Resolved]
  - Acute respiratory distress syndrome [Recovered/Resolved]
  - Cardiac failure congestive [Recovered/Resolved]
  - Migraine [Unknown]
  - Confusional state [Recovered/Resolved]
  - Pneumonia bacterial [Unknown]
  - Legionella infection [Unknown]
  - Ischaemic stroke [Unknown]
  - Malaise [Unknown]
  - Cardiac failure congestive [Unknown]
  - H1N1 influenza [Recovered/Resolved]
  - Respiratory failure [Recovering/Resolving]
  - Dyspnoea [Recovered/Resolved]
  - White blood cell count decreased [Unknown]
  - Oxygen saturation decreased [Not Recovered/Not Resolved]

NARRATIVE: CASE EVENT DATE: 201709
